FAERS Safety Report 12400180 (Version 1)
Quarter: 2016Q2

REPORT INFORMATION
  Report Type: Spontaneous
  Country: None (occurrence: None)
  Receive Date: 20160524
  Receipt Date: 20160524
  Transmission Date: 20160815
  Serious: Yes (Other)
  Sender: FDA-Public Use
  Company Number: None

PATIENT
  Age: 59 Year
  Sex: Male

DRUGS (1)
  1. PERCOCET [Suspect]
     Active Substance: ACETAMINOPHEN\OXYCODONE HYDROCHLORIDE
     Indication: PAIN
     Dosage: 10-325 MG EVERY 6 HRS. ORAL
     Route: 048
     Dates: start: 20150418, end: 20160418

REACTIONS (3)
  - Product substitution issue [None]
  - Drug hypersensitivity [None]
  - Vomiting [None]

NARRATIVE: CASE EVENT DATE: 20160418
